FAERS Safety Report 8132178-0 (Version None)
Quarter: 2012Q1

REPORT INFORMATION
  Report Type: 
  Country: None (occurrence: None)
  Receive Date: 20120213
  Receipt Date: 20120208
  Transmission Date: 20120608
  Serious: Yes (Death, Other)
  Sender: FDA-Public Use
  Company Number: TR-PFIZER INC-2012018263

PATIENT
  Age: 9 Month

DRUGS (1)
  1. SILDENAFIL CITRATE [Suspect]
     Dosage: UNKNOWN
     Route: 065

REACTIONS (1)
  - LOW CARDIAC OUTPUT SYNDROME [None]
